FAERS Safety Report 8764436 (Version 7)
Quarter: 2013Q3

REPORT INFORMATION
  Report Type: Spontaneous
  Country: US (occurrence: US)
  Receive Date: 20120831
  Receipt Date: 20130926
  Transmission Date: 20140515
  Serious: Yes (Death, Hospitalization, Disabling, Other)
  Sender: FDA-Public Use
  Company Number: US-MERCK-1208USA012060

PATIENT
  Sex: Female
  Weight: 61.22 kg

DRUGS (17)
  1. FOSAMAX [Suspect]
     Indication: OSTEOPOROSIS POSTMENOPAUSAL
     Dosage: 5 MG, UNK
     Route: 048
     Dates: start: 19990624
  2. FOSAMAX [Suspect]
     Indication: OSTEOPOROSIS
     Dosage: 70 MG, QW
     Route: 048
  3. FOSAMAX [Suspect]
     Indication: FAMILIAL RISK FACTOR
  4. FOSAMAX PLUS D [Suspect]
     Indication: OSTEOPOROSIS POSTMENOPAUSAL
     Dosage: 70 MG, QW
     Route: 048
     Dates: start: 20050915, end: 20080306
  5. FOSAMAX PLUS D [Suspect]
     Indication: OSTEOPOROSIS
  6. FOSAMAX PLUS D [Suspect]
     Indication: FAMILIAL RISK FACTOR
  7. CALCIUM (UNSPECIFIED) [Concomitant]
     Indication: OSTEOPOROSIS
  8. VITAMIN D (UNSPECIFIED) [Concomitant]
     Indication: OSTEOPOROSIS
     Dosage: 5600 DF, UNK
  9. CALCIUM (UNSPECIFIED) (+) VITAMIN D (UNSPECIFIED) [Concomitant]
     Indication: OSTEOPOROSIS
  10. ZYRTEC [Concomitant]
     Indication: SEASONAL ALLERGY
     Dosage: 10 MG, UNK
     Dates: start: 20030115, end: 2007
  11. CLARITIN [Concomitant]
     Indication: HYPERSENSITIVITY
     Dosage: 10 MG, QD
  12. ACTONEL [Concomitant]
     Indication: OSTEOPOROSIS POSTMENOPAUSAL
     Dosage: 35 MG, QW
     Route: 048
     Dates: start: 2008
  13. DAYPRO [Concomitant]
     Indication: ARTHRITIS
     Dosage: 600 MG, UNK
  14. CELEBREX [Concomitant]
     Indication: ARTHRITIS
     Dosage: 200 MG, UNK
  15. ZOCOR [Concomitant]
     Indication: HYPERCHOLESTEROLAEMIA
     Dosage: 40 MG, QD
     Route: 048
  16. SIMVASTATIN [Concomitant]
     Indication: HYPERCHOLESTEROLAEMIA
     Dosage: 40 MG, UNK
  17. ESTRACE [Concomitant]
     Dosage: 1 MG, UNK

REACTIONS (41)
  - Open reduction of fracture [Unknown]
  - Thrombosis [Unknown]
  - Cerebrovascular accident [Fatal]
  - Tibia fracture [Unknown]
  - Eyelid operation [Unknown]
  - Malignant breast lump removal [Unknown]
  - Metastases to bone [Unknown]
  - Adenotonsillectomy [Unknown]
  - Breast cancer stage I [Unknown]
  - Foot operation [Unknown]
  - Femur fracture [Not Recovered/Not Resolved]
  - Anxiety disorder [Unknown]
  - Temporomandibular joint syndrome [Unknown]
  - Osteoarthritis [Unknown]
  - Deep vein thrombosis [Unknown]
  - Feeling abnormal [Unknown]
  - Cardiac disorder [Unknown]
  - Osteopenia [Unknown]
  - Restless legs syndrome [Unknown]
  - Radiation skin injury [Unknown]
  - Mucosal atrophy [Unknown]
  - Breast disorder [Recovered/Resolved]
  - Radiation injury [Recovered/Resolved]
  - Oedema [Unknown]
  - Erythema [Unknown]
  - Back pain [Unknown]
  - Back pain [Unknown]
  - Gastrooesophageal reflux disease [Unknown]
  - Malaise [Recovering/Resolving]
  - Fatigue [Recovering/Resolving]
  - Drug intolerance [Unknown]
  - Cerebral infarction [Unknown]
  - Supraventricular tachycardia [Unknown]
  - Deep vein thrombosis [Unknown]
  - Tremor [Recovering/Resolving]
  - Dizziness [Unknown]
  - Pain in extremity [Unknown]
  - Oesophageal stenosis [Unknown]
  - Myalgia [Unknown]
  - Confusional state [Unknown]
  - Flushing [Unknown]
